FAERS Safety Report 8835676 (Version 5)
Quarter: 2013Q1

REPORT INFORMATION
  Report Type: Report from Study
  Country: JP (occurrence: JP)
  Receive Date: 20121011
  Receipt Date: 20130131
  Transmission Date: 20140127
  Serious: Yes (Hospitalization)
  Sender: FDA-Public Use
  Company Number: JP-PFIZER INC-2012250864

PATIENT
  Age: 59 Year
  Sex: Female
  Weight: 47 kg

DRUGS (15)
  1. XALKORI [Suspect]
     Indication: NON-SMALL CELL LUNG CANCER
     Dosage: 250 MG, 1X/DAY
     Dates: start: 20120924, end: 20121004
  2. LYRICA [Suspect]
     Indication: NEURALGIA
     Dosage: 75 MG, 3X/DAY
     Route: 048
     Dates: start: 20111004, end: 20121006
  3. LYRICA [Suspect]
     Indication: CANCER PAIN
  4. OXYCONTIN [Concomitant]
     Indication: CANCER PAIN
     Dosage: 15 MG, 2X/DAY
     Route: 048
     Dates: start: 20111012, end: 20121003
  5. OXINORM [Concomitant]
     Indication: CANCER PAIN
     Dosage: 2.5 MG, AS NEEDED
     Route: 048
     Dates: start: 20111012
  6. DUROTEP MT [Concomitant]
     Indication: CANCER PAIN
     Dosage: UNK
     Route: 062
     Dates: start: 20121003
  7. LOXOPROFEN [Concomitant]
     Indication: CANCER PAIN
     Dosage: 60 MG, 3X/DAY
     Route: 048
     Dates: start: 20110927, end: 20121005
  8. GAMOFA [Concomitant]
     Indication: GASTRITIS PROPHYLAXIS
     Dosage: 20 MG, 2X/DAY
     Route: 048
     Dates: start: 20111101
  9. MUCOSTA [Concomitant]
     Indication: GASTRITIS PROPHYLAXIS
     Dosage: 100 MG, 3X/DAY
     Route: 048
     Dates: start: 20110927
  10. PANTOSIN [Concomitant]
     Indication: CONSTIPATION
     Dosage: 100 MG, 3X/DAY
     Route: 048
     Dates: start: 20111012
  11. MAGMITT [Concomitant]
     Indication: CONSTIPATION
     Dosage: 330 MG, 3X/DAY
     Route: 048
     Dates: start: 20111012
  12. SOLANAX [Concomitant]
     Indication: NAUSEA
     Dosage: 0.4 MG, 2X/DAY
     Route: 048
     Dates: start: 20111104
  13. SERENACE [Concomitant]
     Indication: INSOMNIA
     Dosage: 1 DF, 1X/DAY
     Route: 041
     Dates: start: 20121007, end: 20121007
  14. NOVAMIN [Concomitant]
     Indication: NAUSEA
     Dosage: 1 DF, 1X/DAY
     Route: 041
     Dates: start: 20121006
  15. ROPION [Concomitant]
     Indication: CANCER PAIN
     Dosage: 6-10-2012UNK
     Route: 041
     Dates: start: 20121006

REACTIONS (1)
  - Drug withdrawal convulsions [Recovered/Resolved]
